FAERS Safety Report 5144576-8 (Version None)
Quarter: 2006Q4

REPORT INFORMATION
  Report Type: 
  Country: None (occurrence: None)
  Receive Date: 20061031
  Receipt Date: 20061018
  Transmission Date: 20070319
  Serious: Yes (Hospitalization)
  Sender: FDA-Public Use
  Company Number: 2006009218

PATIENT
  Age: 63 Year
  Sex: Male
  Weight: 79 kg

DRUGS (5)
  1. SUTENT [Suspect]
     Indication: GASTROINTESTINAL STROMAL TUMOUR
     Dosage: 37.5 MG (37.5 MG, OD INTERVAL:  4 WKS ON/2WKS OF), ORAL
     Route: 048
     Dates: start: 20051216
  2. LASIX [Concomitant]
  3. CODEINE SUL TAB [Concomitant]
  4. LISINOPRIL [Concomitant]
  5. RHINOSPRAY                   (TRAMAZOLINE HYDROCHLORIDE) [Concomitant]

REACTIONS (4)
  - DIARRHOEA [None]
  - ULCER HAEMORRHAGE [None]
  - VENOUS INSUFFICIENCY [None]
  - VOMITING [None]
